FAERS Safety Report 7430455-X (Version None)
Quarter: 2011Q2

REPORT INFORMATION
  Report Type: 
  Country: None (occurrence: None)
  Receive Date: 20110421
  Receipt Date: 20100830
  Transmission Date: 20111010
  Serious: No
  Sender: FDA-Public Use
  Company Number: US-ASTRAZENECA-2010SE40921

PATIENT
  Age: 75 Year
  Sex: Female

DRUGS (3)
  1. PLAVIX [Suspect]
     Indication: VASCULAR GRAFT
     Dates: start: 20080101
  2. PLAVIX [Suspect]
     Indication: STENT PLACEMENT
     Dates: start: 20080101
  3. TOPROL-XL [Suspect]
     Indication: HYPERTENSION
     Route: 048

REACTIONS (4)
  - ALOPECIA [None]
  - WEIGHT DECREASED [None]
  - CONTUSION [None]
  - PALLOR [None]
